FAERS Safety Report 15426182 (Version 1)
Quarter: 2018Q3

REPORT INFORMATION
  Report Type: Spontaneous
  Country: US (occurrence: US)
  Receive Date: 20180925
  Receipt Date: 20180925
  Transmission Date: 20181010
  Serious: No
  Sender: FDA-Public Use
  Company Number: US-INDIVIOR LIMITED-INDV-103843-2017

PATIENT
  Age: 25 Year
  Sex: Male

DRUGS (2)
  1. ANALGESICS [Concomitant]
     Active Substance: UNSPECIFIED INGREDIENT
     Indication: PRODUCT USED FOR UNKNOWN INDICATION
     Dosage: UNK
     Route: 065
  2. SUBOXONE [Suspect]
     Active Substance: BUPRENORPHINE HYDROCHLORIDE\NALOXONE HYDROCHLORIDE
     Indication: DRUG DEPENDENCE
     Dosage: 8MG, MULTIPLE TIMES A DAY
     Route: 065

REACTIONS (5)
  - Product preparation error [Unknown]
  - Feeling abnormal [Unknown]
  - Somnolence [Unknown]
  - Product use issue [Unknown]
  - Drug ineffective for unapproved indication [Unknown]
